FAERS Safety Report 5868930-1 (Version None)
Quarter: 2008Q3

REPORT INFORMATION
  Report Type: 
  Country: None (occurrence: None)
  Receive Date: 20080903
  Receipt Date: 20080901
  Transmission Date: 20090109
  Serious: Yes (Hospitalization, Other)
  Sender: FDA-Public Use
  Company Number: GB-MERCK-0809GBR00021

PATIENT
  Age: 50 Year
  Sex: Female
  Weight: 55 kg

DRUGS (6)
  1. FOSAMAX [Suspect]
     Indication: OSTEOPOROSIS
     Route: 048
     Dates: start: 20070202, end: 20070301
  2. ACETAMINOPHEN AND CODEINE PHOSPHATE [Concomitant]
     Route: 065
  3. DIAZEPAM [Concomitant]
     Route: 065
  4. DICLOFENAC [Concomitant]
     Route: 065
  5. ESTROGENS (UNSPECIFIED) [Concomitant]
     Route: 065
  6. ESTROGENS, CONJUGATED [Concomitant]
     Route: 065

REACTIONS (1)
  - DYSPNOEA [None]
